FAERS Safety Report 18061043 (Version 1)
Quarter: 2020Q3

REPORT INFORMATION
  Report Type: Spontaneous
  Country: IT (occurrence: IT)
  Receive Date: 20200723
  Receipt Date: 20200723
  Transmission Date: 20201103
  Serious: Yes (Hospitalization, Other)
  Sender: FDA-Public Use
  Company Number: IT-IBIGEN-2020.09044

PATIENT
  Age: 47 Year
  Sex: Male

DRUGS (5)
  1. MEROPENEM. [Suspect]
     Active Substance: MEROPENEM
     Indication: EVIDENCE BASED TREATMENT
     Dosage: 500 MG/D, CONTINUED FOR 4 WEEKS
     Route: 042
  2. ACYCLOVIR. [Suspect]
     Active Substance: ACYCLOVIR
     Dosage: 500 MG/D, CONTINUED FOR 4 WEEKS
     Route: 042
  3. PIPERACILLIN/TAZOBACTAM [Suspect]
     Active Substance: PIPERACILLIN SODIUM\TAZOBACTAM SODIUM
     Indication: EVIDENCE BASED TREATMENT
     Dosage: 2.25 G EVERY 12 H FOR THE FIRST 72 HOURS FROM ADMISSION
     Route: 042
  4. VANCOMYCIN [Suspect]
     Active Substance: VANCOMYCIN
     Indication: EVIDENCE BASED TREATMENT
     Dosage: 1000 MG LOAD DOSE, THEN MONITORING OF HEMATIC LEVELS; CONTINUED FOR 4 WEEKS
     Route: 042
  5. CIPROFLOXACIN. [Suspect]
     Active Substance: CIPROFLOXACIN
     Indication: EVIDENCE BASED TREATMENT
     Dosage: 400 MG/D FOR THE FIRST 72 HOURS FROM ADMISSION
     Route: 042

REACTIONS (14)
  - Blood phosphorus increased [Recovering/Resolving]
  - Creatinine renal clearance decreased [Unknown]
  - Amylase increased [Recovering/Resolving]
  - Complications of transplanted kidney [Not Recovered/Not Resolved]
  - CSF white blood cell count positive [Unknown]
  - Lipase increased [Recovering/Resolving]
  - CSF glucose decreased [Unknown]
  - Renal impairment [Not Recovered/Not Resolved]
  - Blood creatinine increased [Recovering/Resolving]
  - White blood cell count increased [Recovering/Resolving]
  - Procalcitonin increased [Recovering/Resolving]
  - Renal failure [Not Recovered/Not Resolved]
  - CSF protein increased [Unknown]
  - Blood urea increased [Unknown]
